FAERS Safety Report 6784081-6 (Version None)
Quarter: 2010Q2

REPORT INFORMATION
  Report Type: 
  Country: None (occurrence: None)
  Receive Date: 20100618
  Receipt Date: 20100608
  Transmission Date: 20101027
  Serious: Yes (Other)
  Sender: FDA-Public Use
  Company Number: 2010SP032849

PATIENT
  Age: 73 Year
  Sex: Male

DRUGS (1)
  1. MIRALAX [Suspect]
     Dosage: PO
     Route: 048

REACTIONS (2)
  - ANAPHYLACTIC SHOCK [None]
  - CROSS SENSITIVITY REACTION [None]
